FAERS Safety Report 8056420-X (Version None)
Quarter: 2012Q1

REPORT INFORMATION
  Report Type: 
  Country: None (occurrence: None)
  Receive Date: 20120119
  Receipt Date: 20120112
  Transmission Date: 20120608
  Serious: Yes (Other)
  Sender: FDA-Public Use
  Company Number: SE-MERCK-1201SWE00008

PATIENT
  Age: 8 Year
  Sex: Male

DRUGS (3)
  1. BUDESONIDE [Concomitant]
     Route: 055
  2. TERBUTALINE SULFATE [Concomitant]
     Route: 055
  3. SINGULAIR [Suspect]
     Indication: ASTHMA
     Route: 048
     Dates: start: 20111024, end: 20111024

REACTIONS (2)
  - URTICARIA [None]
  - ASTHMA [None]
